FAERS Safety Report 14743889 (Version 1)
Quarter: 2018Q2

REPORT INFORMATION
  Report Type: Spontaneous
  Country: FR (occurrence: FR)
  Receive Date: 20180410
  Receipt Date: 20180410
  Transmission Date: 20180711
  Serious: Yes (Other)
  Sender: FDA-Public Use
  Company Number: FR-TEVA-2018-FR-880317

PATIENT
  Age: 33 Year
  Sex: Male

DRUGS (3)
  1. AMOXICILLINE SODIQUE [Suspect]
     Active Substance: AMOXICILLIN
     Indication: DENTAL CARE
     Route: 048
  2. DOTAREM [Concomitant]
     Active Substance: GADOTERATE MEGLUMINE
     Indication: CARDIAC IMAGING PROCEDURE
     Route: 042
  3. MAXILASE [Suspect]
     Active Substance: PANCRELIPASE
     Indication: DENTAL CARE
     Route: 048

REACTIONS (1)
  - Rash generalised [Recovered/Resolved]
